FAERS Safety Report 12656113 (Version 1)
Quarter: 2016Q3

REPORT INFORMATION
  Report Type: Spontaneous
  Country: US (occurrence: US)
  Receive Date: 20160816
  Receipt Date: 20160816
  Transmission Date: 20161109
  Serious: No
  Sender: FDA-Public Use
  Company Number: US-BAYER-2016-157773

PATIENT
  Age: 65 Year
  Sex: Male
  Weight: 69.3 kg

DRUGS (1)
  1. ZEGERID OTC CAPSULES [Suspect]
     Active Substance: OMEPRAZOLE\SODIUM BICARBONATE
     Indication: GASTROOESOPHAGEAL REFLUX DISEASE
     Dosage: 1 UNK, BID
     Route: 048
     Dates: start: 20160812, end: 20160812

REACTIONS (3)
  - Off label use [None]
  - Drug prescribing error [None]
  - Oesophageal discomfort [Recovered/Resolved]

NARRATIVE: CASE EVENT DATE: 20160812
